FAERS Safety Report 10579672 (Version 1)
Quarter: 2014Q4

REPORT INFORMATION
  Report Type: Spontaneous
  Country: GB (occurrence: GB)
  Receive Date: 20141112
  Receipt Date: 20141112
  Transmission Date: 20150529
  Serious: Yes (Disabling, Other)
  Sender: FDA-Public Use
  Company Number: GB-MERCK-1411GBR005113

PATIENT
  Age: 41 Year
  Sex: Male

DRUGS (1)
  1. SIMVASTATIN. [Suspect]
     Active Substance: SIMVASTATIN
     Indication: BLOOD CHOLESTEROL INCREASED
     Dosage: DIFFERENT DOSE
     Route: 048

REACTIONS (13)
  - Drug ineffective [Unknown]
  - Fatigue [Unknown]
  - Quality of life decreased [Unknown]
  - Hyperhidrosis [Unknown]
  - Psychiatric symptom [Unknown]
  - Balance disorder [Unknown]
  - Muscular weakness [Unknown]
  - Somnolence [Unknown]
  - Diarrhoea [Unknown]
  - Impaired work ability [Unknown]
  - Myalgia [Unknown]
  - Activities of daily living impaired [Unknown]
  - Self esteem decreased [Unknown]
